FAERS Safety Report 14896218 (Version 1)
Quarter: 2018Q2

REPORT INFORMATION
  Report Type: Spontaneous
  Country: US (occurrence: US)
  Receive Date: 20180515
  Receipt Date: 20180515
  Transmission Date: 20180711
  Serious: Yes (Other)
  Sender: FDA-Public Use
  Company Number: US-PFIZER INC-2018137714

PATIENT
  Age: 57 Year
  Sex: Female

DRUGS (3)
  1. CARBOPLATIN. [Concomitant]
     Active Substance: CARBOPLATIN
     Indication: ENDOMETRIAL CANCER METASTATIC
     Dosage: UNK UNK, CYCLIC (AUC = 5)
     Route: 042
  2. TEMSIROLIMUS [Suspect]
     Active Substance: TEMSIROLIMUS
     Indication: ENDOMETRIAL CANCER METASTATIC
     Dosage: UNK (RECEIVED TEMSIROLIMUS FOR }17 MO)
  3. PACLITAXEL. [Concomitant]
     Active Substance: PACLITAXEL
     Indication: ENDOMETRIAL CANCER METASTATIC
     Dosage: 175 MG/M2, CYCLIC
     Route: 042

REACTIONS (2)
  - Pyrexia [Unknown]
  - Neuropathy peripheral [Unknown]
